FAERS Safety Report 9002213 (Version 5)
Quarter: 2013Q4

REPORT INFORMATION
  Report Type: Spontaneous
  Country: US (occurrence: US)
  Receive Date: 20130107
  Receipt Date: 20131018
  Transmission Date: 20140711
  Serious: Yes (Hospitalization, Disabling, Other)
  Sender: FDA-Public Use
  Company Number: US-009507513-1301USA000890

PATIENT
  Sex: Female
  Weight: 63.39 kg

DRUGS (10)
  1. FOSAMAX [Suspect]
     Indication: OSTEOPOROSIS
     Dosage: 10 MG, QD
     Route: 048
     Dates: start: 19970602, end: 20070112
  2. FOSAMAX [Suspect]
     Dosage: 70 MG, QW
     Route: 048
     Dates: end: 20070112
  3. FOSAMAX PLUS D [Suspect]
     Indication: OSTEOPOROSIS
     Dosage: 70 MG/ 2800 MG, QW
     Route: 048
     Dates: end: 20090707
  4. ALENDRONATE SODIUM [Suspect]
     Indication: OSTEOPOROSIS
     Dosage: 70 MG, QW
     Route: 048
     Dates: start: 20090708, end: 20110307
  5. EVISTA [Concomitant]
     Indication: OSTEOPOROSIS
     Dosage: UNK
     Dates: start: 20020614, end: 20020713
  6. FORTEO [Concomitant]
     Indication: OSTEOPOROSIS
     Dosage: 750 MICROGRAM, UNK
     Route: 058
     Dates: start: 20061213, end: 200804
  7. CALCIUM (UNSPECIFIED) (+) VITAMIN D (UNSPECIFIED) [Concomitant]
     Dosage: 1200 MG, QD
     Dates: start: 1996
  8. VITAMINS (UNSPECIFIED) [Concomitant]
     Dosage: 1 DF, QD
     Dates: start: 1996
  9. PROMETHAZINE [Concomitant]
     Indication: HYPERSENSITIVITY
     Dosage: UNK
     Dates: start: 200602, end: 200603
  10. FEXOFENADINE HYDROCHLORIDE [Concomitant]
     Indication: HYPERSENSITIVITY
     Dosage: UNK
     Dates: start: 20060702, end: 200608

REACTIONS (32)
  - Femoral neck fracture [Not Recovered/Not Resolved]
  - Hip arthroplasty [Unknown]
  - Low turnover osteopathy [Not Recovered/Not Resolved]
  - Osteoporosis [Not Recovered/Not Resolved]
  - Stress fracture [Not Recovered/Not Resolved]
  - Femur fracture [Not Recovered/Not Resolved]
  - Arthritis [Unknown]
  - Vitamin D deficiency [Unknown]
  - Hypothyroidism [Unknown]
  - Dental implantation [Unknown]
  - Endodontic procedure [Unknown]
  - Artificial crown procedure [Unknown]
  - Adverse event [Unknown]
  - Bacterial infection [Unknown]
  - Muscle tightness [Unknown]
  - Sleep disorder [Unknown]
  - Pain [Unknown]
  - Osteosclerosis [Unknown]
  - Bladder repair [Unknown]
  - Bundle branch block right [Unknown]
  - Arthritis [Unknown]
  - Bursitis [Unknown]
  - Foot fracture [Unknown]
  - Osteopenia [Unknown]
  - Eyelid operation [Unknown]
  - Fall [Unknown]
  - Chest pain [Unknown]
  - Pain in extremity [Unknown]
  - Musculoskeletal pain [Unknown]
  - Arthralgia [Unknown]
  - Drug ineffective [Unknown]
  - Abdominal pain upper [Unknown]
